FAERS Safety Report 17679440 (Version 1)
Quarter: 2020Q2

REPORT INFORMATION
  Report Type: Spontaneous
  Country: CA (occurrence: CA)
  Receive Date: 20200417
  Receipt Date: 20200417
  Transmission Date: 20200714
  Serious: Yes (Death)
  Sender: FDA-Public Use
  Company Number: NVSC2020CA101665

PATIENT
  Age: 61 Year
  Sex: Male

DRUGS (3)
  1. ATRIANCE [Suspect]
     Active Substance: NELARABINE
     Indication: T-CELL TYPE ACUTE LEUKAEMIA
     Dosage: 1500 MG/M2, CYCLIC
     Route: 042
  2. ATRIANCE [Suspect]
     Active Substance: NELARABINE
     Indication: LEUKAEMIA RECURRENT
  3. ATRIANCE [Suspect]
     Active Substance: NELARABINE
     Indication: ADULT T-CELL LYMPHOMA/LEUKAEMIA REFRACTORY

REACTIONS (10)
  - Peripheral sensorimotor neuropathy [Fatal]
  - Gliosis [Fatal]
  - Pyrexia [Fatal]
  - Guillain-Barre syndrome [Fatal]
  - Central nervous system necrosis [Fatal]
  - Headache [Fatal]
  - Meningitis [Fatal]
  - Neck pain [Fatal]
  - Nerve degeneration [Fatal]
  - Pneumonia [Fatal]
